FAERS Safety Report 25452693 (Version 1)
Quarter: 2025Q2

REPORT INFORMATION
  Report Type: Spontaneous
  Country: CH (occurrence: CH)
  Receive Date: 20250618
  Receipt Date: 20250618
  Transmission Date: 20250716
  Serious: Yes (Other)
  Sender: TEVA
  Company Number: CH-TEVA-VS-3340094

PATIENT
  Age: 72 Year
  Sex: Male

DRUGS (1)
  1. CABAZITAXEL [Suspect]
     Active Substance: CABAZITAXEL
     Indication: Hormone-refractory prostate cancer
     Route: 065

REACTIONS (2)
  - Hormone-refractory prostate cancer [Unknown]
  - Prostate cancer metastatic [Unknown]
